FAERS Safety Report 10619231 (Version 2)
Quarter: 2023Q1

REPORT INFORMATION
  Report Type: Spontaneous
  Country: DE (occurrence: DE)
  Receive Date: 20141202
  Receipt Date: 20230120
  Transmission Date: 20230418
  Serious: Yes (Life-Threatening, Hospitalization, Other)
  Sender: FDA-Public Use
  Company Number: DE-MYLANLABS-2014M1012205

PATIENT
  Age: 21 Year
  Sex: Female

DRUGS (7)
  1. AMITRIPTYLINE [Suspect]
     Active Substance: AMITRIPTYLINE
     Indication: Product used for unknown indication
     Dosage: 6 GRAM, 60 TABLETS OF 100 MG, 6 G, UNK
     Route: 048
  2. AMLODIPINE [Suspect]
     Active Substance: AMLODIPINE BESYLATE
     Indication: Product used for unknown indication
     Dosage: 300 MILLIGRAM, 1ST TRIMESTER, 60 TABLETS OF 5MG (300MG)
     Route: 048
  3. CARVEDILOL [Suspect]
     Active Substance: CARVEDILOL
     Indication: Product used for unknown indication
     Dosage: 1750 MILLIGRAM, QD, 70 TABLETS OF 25MG (1750MG)
     Route: 048
  4. GABAPENTIN [Suspect]
     Active Substance: GABAPENTIN
     Indication: Product used for unknown indication
     Dosage: 16 GRAM, 1 TRIMISTER, 40 TABLETS OF 400 MG, 16 G, UNK
     Route: 048
  5. KETOPROFEN [Suspect]
     Active Substance: KETOPROFEN
     Indication: Product used for unknown indication
     Dosage: 1.5G,TOTAL, 1.5G EVERY, 30 TABLET OF 50MG (1500MG)
     Route: 048
  6. TORSEMIDE [Suspect]
     Active Substance: TORSEMIDE
     Indication: Product used for unknown indication
     Dosage: 500 MILLIGRAM, TOTAL (50 TABLETS OF 10 MG) 500 MG, UNK
     Route: 048
  7. NICOTINIC ACID [Suspect]
     Active Substance: NIACIN
     Indication: Product used for unknown indication
     Dosage: 28 GRAM, TOTAL, 56 TABLETS OF 500MG (28000MG)
     Route: 048

REACTIONS (20)
  - Cardiac failure [Recovered/Resolved]
  - Suicide attempt [Recovered/Resolved]
  - Toxicity to various agents [Recovering/Resolving]
  - Loss of consciousness [Recovered/Resolved]
  - Bradycardia [Recovered/Resolved]
  - Compartment syndrome [Unknown]
  - Intentional overdose [Recovered/Resolved]
  - Drug interaction [Unknown]
  - PCO2 increased [Recovered/Resolved]
  - Ventricular hypokinesia [Recovered/Resolved]
  - Nodal rhythm [Recovered/Resolved]
  - Alanine aminotransferase increased [Unknown]
  - Circulatory collapse [Recovered/Resolved]
  - Blood creatine phosphokinase increased [Recovered/Resolved]
  - Blood lactic acid increased [Recovered/Resolved]
  - Sinoatrial block [Recovered/Resolved]
  - Femoral artery dissection [Unknown]
  - Pulse absent [Recovered/Resolved]
  - Aspartate aminotransferase increased [Unknown]
  - Cardiac arrest [Recovered/Resolved]
